FAERS Safety Report 9934840 (Version 2)
Quarter: 2014Q2

REPORT INFORMATION
  Report Type: Spontaneous
  Country: JP (occurrence: JP)
  Receive Date: 20140228
  Receipt Date: 20140408
  Transmission Date: 20141212
  Serious: Yes (Other)
  Sender: FDA-Public Use
  Company Number: PHHY2014JP025082

PATIENT
  Sex: Female

DRUGS (10)
  1. VOLTAREN [Suspect]
     Indication: BEHCET^S SYNDROME
     Dosage: UNK UKN, UNK
     Route: 054
  2. LOXONIN [Concomitant]
     Dosage: UNK UKN, UNK
  3. MUCOSTA [Concomitant]
     Dosage: UNK UKN, UNK
  4. PREDONINE [Concomitant]
     Dosage: UNK UKN, UNK
  5. COLCHICINE [Concomitant]
     Dosage: UNK UKN, UNK
     Route: 048
  6. TRAMCET [Concomitant]
     Dosage: UNK UKN, UNK
     Route: 048
  7. HUMIRA [Concomitant]
     Dosage: UNK UKN, UNK
  8. GASLON [Concomitant]
     Dosage: UNK UKN, UNK
     Route: 048
  9. CELESTAMINE                        /00252801/ [Concomitant]
     Dosage: UNK UKN, UNK
     Route: 048
  10. BAKTAR [Concomitant]
     Dosage: UNK UKN, UNK
     Route: 048

REACTIONS (3)
  - Respiratory disorder [Unknown]
  - Shock [Unknown]
  - Urticaria [Unknown]
